FAERS Safety Report 4425972-0 (Version None)
Quarter: 2004Q3

REPORT INFORMATION
  Report Type: 
  Country: None (occurrence: None)
  Receive Date: 20040719
  Receipt Date: 20040604
  Transmission Date: 20050211
  Serious: No
  Sender: FDA-Public Use
  Company Number: A03200401802

PATIENT
  Age: 79 Year
  Sex: Male
  Weight: 85.2762 kg

DRUGS (1)
  1. UROXATRAL [Suspect]
     Indication: BENIGN PROSTATIC HYPERPLASIA
     Dosage: 10 MG QD - ORAL
     Route: 048
     Dates: start: 20040603

REACTIONS (1)
  - NEURALGIA [None]
